FAERS Safety Report 19894402 (Version 4)
Quarter: 2021Q4

REPORT INFORMATION
  Report Type: Report from Study
  Country: US (occurrence: US)
  Receive Date: 20210928
  Receipt Date: 20211110
  Transmission Date: 20220304
  Serious: Yes (Hospitalization)
  Sender: FDA-Public Use
  Company Number: US-CELGENE-USA-20210905917

PATIENT
  Age: 31 Year
  Sex: Male
  Weight: 64.8 kg

DRUGS (15)
  1. LENALIDOMIDE [Suspect]
     Active Substance: LENALIDOMIDE
     Indication: Adult T-cell lymphoma/leukaemia
     Dosage: 15 MILLIGRAM
     Route: 048
     Dates: start: 20210713, end: 20210916
  2. LENALIDOMIDE [Suspect]
     Active Substance: LENALIDOMIDE
     Dosage: 10 MILLIGRAM
     Route: 048
     Dates: start: 20211019
  3. AZACITIDINE [Suspect]
     Active Substance: AZACITIDINE
     Indication: Adult T-cell lymphoma/leukaemia
     Dosage: 200 MILLIGRAM
     Route: 048
     Dates: start: 20210720, end: 20210916
  4. AZACITIDINE [Suspect]
     Active Substance: AZACITIDINE
     Dosage: 300 MILLIGRAM
     Route: 048
  5. AZACITIDINE [Suspect]
     Active Substance: AZACITIDINE
     Dosage: 100 MILLIGRAM
     Route: 048
     Dates: start: 20211019
  6. ISTODAX [Suspect]
     Active Substance: ROMIDEPSIN
     Indication: Adult T-cell lymphoma/leukaemia
     Dosage: 12 MILLIGRAM/SQ. METER
     Route: 041
     Dates: start: 20210720, end: 20210914
  7. DEXAMETHASONE [Suspect]
     Active Substance: DEXAMETHASONE
     Indication: Adult T-cell lymphoma/leukaemia
     Dosage: 40 MILLIGRAM
     Route: 048
     Dates: start: 20210720, end: 20210914
  8. GRANISETRON [Concomitant]
     Active Substance: GRANISETRON
     Indication: Nausea
     Route: 065
  9. FAMOTIDINE [Concomitant]
     Active Substance: FAMOTIDINE
     Indication: Product used for unknown indication
     Dosage: 40 MILLIGRAM
     Route: 065
  10. ACYCLOVIR [Concomitant]
     Active Substance: ACYCLOVIR
     Indication: Product used for unknown indication
     Dosage: 800 MILLIGRAM
     Route: 065
  11. BACTRIM DS [Concomitant]
     Active Substance: SULFAMETHOXAZOLE\TRIMETHOPRIM
     Indication: Product used for unknown indication
     Route: 048
  12. IVERMECTIN [Concomitant]
     Active Substance: IVERMECTIN
     Indication: Acarodermatitis
     Route: 065
  13. ASPIRIN [Concomitant]
     Active Substance: ASPIRIN
     Indication: Product used for unknown indication
     Dosage: 81 MILLIGRAM
     Route: 048
  14. ALLOPURINOL [Concomitant]
     Active Substance: ALLOPURINOL
     Indication: Product used for unknown indication
     Dosage: 300 MILLIGRAM
     Route: 048
  15. BENADRYL [Concomitant]
     Active Substance: DIPHENHYDRAMINE HYDROCHLORIDE
     Indication: Product used for unknown indication
     Route: 065

REACTIONS (2)
  - Rhabdomyolysis [Recovered/Resolved]
  - Blood bilirubin increased [Recovered/Resolved]

NARRATIVE: CASE EVENT DATE: 20210917
